FAERS Safety Report 7557424-3 (Version None)
Quarter: 2011Q2

REPORT INFORMATION
  Report Type: 
  Country: None (occurrence: None)
  Receive Date: 20110620
  Receipt Date: 20110607
  Transmission Date: 20111010
  Serious: Yes (Hospitalization, Other)
  Sender: FDA-Public Use
  Company Number: US-ROCHE-782619

PATIENT

DRUGS (5)
  1. DOXORUBICIN HCL [Suspect]
     Indication: BREAST CANCER
     Dosage: IVP ON DAY 1
     Route: 042
     Dates: start: 20100611
  2. PACLITAXEL [Suspect]
     Indication: BREAST CANCER
     Dosage: IV OVER 1 HR ON DAY 1,8 AND 15
     Route: 042
  3. PEGFILGRASTIM [Concomitant]
     Dosage: ON DAY 2
     Route: 058
     Dates: start: 20100611
  4. BLINDED BEVACIZUMAB [Suspect]
     Indication: BREAST CANCER
     Dosage: INTRAVENOUS OVER 30 -90 MIN ON DAY 1,LAST DOSE :23 JULY 2010
     Route: 042
     Dates: start: 20100611
  5. CYCLOPHOSPHAMIDE [Suspect]
     Indication: BREAST CANCER
     Dosage: IV OVER 20-30 MIN ON DAY 1
     Route: 042
     Dates: start: 20100611

REACTIONS (3)
  - EXTERNAL EAR INFLAMMATION [None]
  - FEBRILE NEUTROPENIA [None]
  - HAEMOGLOBIN DECREASED [None]
